FAERS Safety Report 11081870 (Version 1)
Quarter: 2015Q2

REPORT INFORMATION
  Report Type: Spontaneous
  Country: KR (occurrence: KR)
  Receive Date: 20150501
  Receipt Date: 20150501
  Transmission Date: 20150821
  Serious: Yes (Hospitalization)
  Sender: FDA-Public Use
  Company Number: KR-TEVA-558391ISR

PATIENT
  Age: 67 Year
  Sex: Female
  Weight: 63 kg

DRUGS (8)
  1. VYTORIN / EZETIMIB 10 MG + SIMVASTATIN 20 MG [Concomitant]
     Indication: PROPHYLAXIS
     Route: 048
     Dates: start: 20141014
  2. AZILECT [Suspect]
     Active Substance: RASAGILINE MESYLATE
     Indication: PARKINSON^S DISEASE
     Dosage: 1 MILLIGRAM DAILY;
     Route: 048
     Dates: start: 20150317
  3. SINEMET / CARBIDOPA 25 MG + LEVODOPA 250 MG [Concomitant]
     Indication: PARKINSON^S DISEASE
     Route: 048
     Dates: start: 20141020
  4. GILATILIN / CHOLINE ALFOSCERATE [Concomitant]
     Indication: PROPHYLAXIS
     Dosage: 120 MILLIGRAM DAILY;
     Route: 048
     Dates: start: 20141020
  5. TRAJENTA / LINAGLIPTIN [Concomitant]
     Indication: DIABETES MELLITUS
     Dosage: 5 MILLIGRAM DAILY;
     Route: 048
     Dates: start: 20141014
  6. AMARYL M / GLIMEPRIDE 1 MG + METFORMIN 250 MG [Concomitant]
     Indication: DIABETES MELLITUS
     Route: 048
     Dates: start: 20141014
  7. MIRAPEX / PRAMIPEXOLE [Concomitant]
     Indication: PARKINSON^S DISEASE
     Dosage: .75 MILLIGRAM DAILY;
     Route: 048
     Dates: start: 20141020
  8. MOTILIUM-M / DOMPERIDONE [Concomitant]
     Indication: PROPHYLAXIS
     Dosage: 30 MILLIGRAM DAILY;
     Route: 048
     Dates: start: 20141020

REACTIONS (1)
  - Back pain [Recovered/Resolved]

NARRATIVE: CASE EVENT DATE: 20150318
